FAERS Safety Report 9416817 (Version 1)
Quarter: 2013Q3

REPORT INFORMATION
  Report Type: Spontaneous
  Country: US (occurrence: US)
  Receive Date: 20130724
  Receipt Date: 20130724
  Transmission Date: 20140515
  Serious: No
  Sender: FDA-Public Use
  Company Number: US-GALDERMA-US13001653

PATIENT
  Age: 77 Year
  Sex: Female
  Weight: 64 kg

DRUGS (5)
  1. ORACEA (DOXYCYCLINE, USP) CAPSULES 40 MG [Suspect]
     Indication: DERMATITIS
     Route: 048
     Dates: start: 20130515, end: 20130518
  2. SIMVASTATIN [Concomitant]
     Indication: BLOOD CHOLESTEROL INCREASED
     Route: 048
  3. DIOVAN [Concomitant]
     Indication: HYPERTENSION
     Route: 048
  4. CENTRUM SILVER MULTIVITAMINS [Concomitant]
     Route: 048
  5. CALCIUM SUPPLEMENT [Concomitant]
     Route: 048

REACTIONS (3)
  - Rash [Recovering/Resolving]
  - Skin exfoliation [Recovering/Resolving]
  - Off label use [Recovered/Resolved]
